FAERS Safety Report 5919143-6 (Version None)
Quarter: 2008Q4

REPORT INFORMATION
  Report Type: 
  Country: None (occurrence: None)
  Receive Date: 20081015
  Receipt Date: 20081006
  Transmission Date: 20090506
  Serious: Yes (Hospitalization)
  Sender: FDA-Public Use
  Company Number: US-JNJFOC-20081001596

PATIENT
  Sex: Female
  Weight: 75.3 kg

DRUGS (2)
  1. MONONESSA [Suspect]
     Indication: CONTRACEPTION
     Dosage: ETHINYL ESTRADIOL 0.035MG/ NORGESTIMATE 0.25 MG
     Route: 048
  2. WARFARIN SODIUM [Concomitant]
     Indication: THROMBOSIS
     Dosage: EVEN DAY 5 MG AND ON ODD DAYS 7.5MG

REACTIONS (2)
  - PATELLA FRACTURE [None]
  - THROMBOSIS [None]
